FAERS Safety Report 8938254 (Version 1)
Quarter: 2012Q4

REPORT INFORMATION
  Report Type: 
  Country: FR (occurrence: FR)
  Receive Date: 20121203
  Receipt Date: 20121203
  Transmission Date: 20130627
  Serious: Yes (Life-Threatening, Other)
  Sender: FDA-Public Use
  Company Number: PHHY2012FR110122

PATIENT
  Age: 67 Year
  Sex: Female

DRUGS (13)
  1. VOLTARENE [Suspect]
     Dosage: 75 mg, QD
     Route: 048
     Dates: end: 20121007
  2. RENITEC [Suspect]
     Dosage: 20 mg, QD
     Route: 048
     Dates: end: 20121007
  3. LASILIX [Suspect]
     Dosage: 40 mg, QD
     Route: 048
     Dates: end: 20121007
  4. GLUCOPHAGE [Suspect]
     Dosage: 850 mg, TID
     Route: 048
     Dates: end: 20121007
  5. AUGMENTIN [Concomitant]
     Dosage: UNK UKN, UNK
     Route: 048
     Dates: start: 20120917, end: 20120924
  6. AMLODIPINE [Concomitant]
     Dosage: 5 mg, QD
     Route: 048
     Dates: end: 20121011
  7. AMLODIPINE [Concomitant]
     Dosage: 10 mg, QD
     Route: 048
     Dates: start: 20121012, end: 20121019
  8. CLOPIDOGREL HYDROCHLORIDE [Concomitant]
     Dosage: 75 mg, QD
     Route: 048
     Dates: end: 20121019
  9. KARDEGIC [Concomitant]
     Dosage: 75 mg, QD
     Route: 048
  10. PRAVASTATIN SODIUM [Concomitant]
     Dosage: 10 mg, QD
     Route: 048
     Dates: end: 20121007
  11. OMEPRAZOLE [Concomitant]
     Dosage: 20 mg, QD
     Route: 048
  12. OFLOCET [Concomitant]
     Dosage: UNK UKN, UNK
     Dates: start: 20121005
  13. ULTRA-LEVURE [Concomitant]
     Dosage: UNK UKN, UNK
     Dates: start: 20121005

REACTIONS (8)
  - Renal failure acute [Recovered/Resolved]
  - Anuria [Recovered/Resolved]
  - Dysuria [Unknown]
  - Hyperkalaemia [Recovering/Resolving]
  - Hypovolaemia [Unknown]
  - Acidosis [Recovered/Resolved]
  - Normochromic normocytic anaemia [Recovering/Resolving]
  - Diarrhoea [Unknown]
